FAERS Safety Report 9286466 (Version 1)
Quarter: 2013Q2

REPORT INFORMATION
  Report Type: Spontaneous
  Country: CO (occurrence: CO)
  Receive Date: 20130513
  Receipt Date: 20130513
  Transmission Date: 20140414
  Serious: Yes (Life-Threatening)
  Sender: FDA-Public Use
  Company Number: CO-BAXTER-2013BAX017191

PATIENT
  Age: 52 Year
  Sex: Male

DRUGS (1)
  1. TISSUCOL KIT ADHESIVO BIOL?GICO DE DOS COMPONENTES [Suspect]
     Indication: VENA CAVA INJURY
     Route: 065
     Dates: start: 20130207, end: 20130207

REACTIONS (1)
  - Pelvic venous thrombosis [Recovered/Resolved]
